FAERS Safety Report 6321033-4 (Version None)
Quarter: 2009Q3

REPORT INFORMATION
  Report Type: 
  Country: None (occurrence: None)
  Receive Date: 20090822
  Receipt Date: 20081224
  Transmission Date: 20100115
  Serious: No
  Sender: FDA-Public Use
  Company Number: US-ABBOTT-08P-163-0494818-00

PATIENT
  Sex: Female

DRUGS (5)
  1. NIASPAN [Suspect]
     Indication: BLOOD CHOLESTEROL INCREASED
     Dosage: 1 IN 1 D, AT BEDTIME
     Route: 048
     Dates: start: 20081122
  2. DOXYCYCLINE [Concomitant]
     Indication: DRUG USE FOR UNKNOWN INDICATION
  3. FENACEA [Concomitant]
     Indication: DRUG USE FOR UNKNOWN INDICATION
  4. MAXZIDE [Concomitant]
     Indication: DRUG USE FOR UNKNOWN INDICATION
  5. LEXAPRO [Concomitant]
     Indication: DRUG USE FOR UNKNOWN INDICATION

REACTIONS (3)
  - ERYTHEMA [None]
  - FLUSHING [None]
  - HYPERHIDROSIS [None]
